FAERS Safety Report 12126969 (Version 1)
Quarter: 2016Q1

REPORT INFORMATION
  Report Type: Spontaneous
  Country: PT (occurrence: PT)
  Receive Date: 20160229
  Receipt Date: 20160229
  Transmission Date: 20160526
  Serious: Yes (Hospitalization)
  Sender: FDA-Public Use
  Company Number: PT-MYLANLABS-2016M1007997

PATIENT

DRUGS (3)
  1. CONCOR [Concomitant]
     Active Substance: BISOPROLOL FUMARATE
     Indication: HYPERTENSION
     Dosage: UNK
  2. ESCITALOPRAM [Suspect]
     Active Substance: ESCITALOPRAM OXALATE
     Indication: DEPRESSION
     Dosage: 10 MG, QD
     Route: 065
  3. LORAZEPAM. [Concomitant]
     Active Substance: LORAZEPAM
     Indication: SLEEP DISORDER
     Dosage: UNK

REACTIONS (10)
  - Apathy [Unknown]
  - Diet refusal [Unknown]
  - Confusional state [Unknown]
  - Death of relative [Unknown]
  - Gait disturbance [Unknown]
  - Insomnia [None]
  - Expired product administered [Unknown]
  - Decreased appetite [Unknown]
  - Asthenia [Unknown]
  - Depression [Unknown]
